FAERS Safety Report 20678811 (Version 1)
Quarter: 2022Q2

REPORT INFORMATION
  Report Type: Other
  Country: ZA (occurrence: None)
  Receive Date: 20220406
  Receipt Date: 20220406
  Transmission Date: 20220721
  Serious: Yes (Other)
  Sender: FDA-Public Use
  Company Number: ZA-ROCHE-3063859

PATIENT
  Sex: Female

DRUGS (1)
  1. OCREVUS [Suspect]
     Active Substance: OCRELIZUMAB
     Indication: Product used for unknown indication
     Dosage: THEN 600MG EVERY SIX MONTHS
     Route: 041
     Dates: start: 20210930

REACTIONS (7)
  - Cerebral atrophy [Unknown]
  - Cerebellar atrophy [Unknown]
  - White matter lesion [Unknown]
  - Central nervous system lesion [Unknown]
  - Spinal osteoarthritis [Unknown]
  - Intervertebral disc degeneration [Unknown]
  - Intervertebral disc protrusion [Unknown]
